FAERS Safety Report 8972315 (Version 1)
Quarter: 2012Q4

REPORT INFORMATION
  Report Type: 
  Country: US (occurrence: US)
  Receive Date: 20121219
  Receipt Date: 20121219
  Transmission Date: 20130627
  Serious: Yes (Other)
  Sender: FDA-Public Use
  Company Number: US-PFIZER INC-2012317290

PATIENT
  Age: 71 Year
  Sex: Male

DRUGS (4)
  1. VIAGRA [Suspect]
     Dosage: 25 mg, UNK
  2. VIAGRA [Suspect]
     Dosage: 50 mg, UNK
  3. VIAGRA [Suspect]
     Dosage: 100 mg, UNK
  4. VIAGRA [Suspect]
     Dosage: 75 mg, UNK

REACTIONS (1)
  - Cerebrovascular accident [Unknown]
